FAERS Safety Report 7331251-4 (Version None)
Quarter: 2011Q1

REPORT INFORMATION
  Report Type: 
  Country: None (occurrence: None)
  Receive Date: 20110304
  Receipt Date: 20110303
  Transmission Date: 20110831
  Serious: Yes (Other)
  Sender: FDA-Public Use
  Company Number: JP-PFIZER INC-2011046296

PATIENT
  Age: 45 Year
  Sex: Male

DRUGS (2)
  1. DEPAS [Concomitant]
     Dosage: UNK
  2. ZOLOFT [Suspect]
     Dosage: 75 MG, DAILY
     Dates: start: 20101001

REACTIONS (1)
  - LOSS OF CONSCIOUSNESS [None]
